FAERS Safety Report 7794801-X (Version None)
Quarter: 2011Q4

REPORT INFORMATION
  Report Type: 
  Country: None (occurrence: None)
  Receive Date: 20111004
  Receipt Date: 20110930
  Transmission Date: 20120403
  Serious: No
  Sender: FDA-Public Use
  Company Number: US-PFIZER INC-2011234249

PATIENT
  Sex: Female
  Weight: 87 kg

DRUGS (5)
  1. ATENOLOL [Concomitant]
     Indication: HYPERTENSION
     Dosage: UNK
  2. TRIOBE [Concomitant]
     Dosage: UNK
  3. NEXIUM [Concomitant]
     Indication: GASTROOESOPHAGEAL REFLUX DISEASE
     Dosage: UNK
  4. LIPITOR [Suspect]
     Indication: BLOOD CHOLESTEROL INCREASED
     Dosage: 5 MG, 1X/DAY
     Route: 048
     Dates: start: 20101101
  5. NIFEDICAL [Concomitant]
     Dosage: UNK, 1X/DAY

REACTIONS (3)
  - ASTHENIA [None]
  - MUSCLE SPASMS [None]
  - ARTHRALGIA [None]
